FAERS Safety Report 8965814 (Version 2)
Quarter: 2013Q1

REPORT INFORMATION
  Report Type: Spontaneous
  Country: GB (occurrence: None)
  Receive Date: 20121204
  Receipt Date: 20130109
  Transmission Date: 20140127
  Serious: Yes (Hospitalization)
  Sender: FDA-Public Use
  Company Number: DSA_61177_2012

PATIENT
  Age: 59 Year
  Sex: Male

DRUGS (12)
  1. 5-FU [Suspect]
     Indication: COLORECTAL CANCER METASTATIC
     Dosage: 1X/2 WEEKS
     Route: 040
     Dates: start: 20120912, end: 20120912
  2. AFLIBERCEPT [Suspect]
     Indication: COLORECTAL CANCER METASTATIC
     Dosage: 1X/2 WEEKS
     Route: 042
     Dates: start: 20120912, end: 20120912
  3. IRINOTECAN [Suspect]
     Indication: COLORECTAL CANCER METASTATIC
     Dosage: 1X/2 WEEKS
     Route: 042
     Dates: start: 20120912, end: 20120912
  4. LEUCOVORIN /00566701/ [Suspect]
     Indication: COLORECTAL CANCER METASTATIC
     Dosage: 1X/2 WEEKS
     Route: 042
     Dates: start: 20120912, end: 20120912
  5. ACE INHIBITORS [Concomitant]
  6. CALCIUM CHANNEL BLOCKERS [Concomitant]
  7. ATORVASTATIN [Concomitant]
  8. METFORMIN [Concomitant]
  9. ASPIRIN [Concomitant]
  10. BENZYDAMINE HYDROCHLORIDE [Concomitant]
  11. CODEINE LINCTUS [Concomitant]
  12. DOMPERIDONE [Concomitant]

REACTIONS (5)
  - Neutropenic sepsis [None]
  - Arthralgia [None]
  - Oropharyngeal pain [None]
  - Productive cough [None]
  - Nausea [None]
